FAERS Safety Report 4516950-1 (Version None)
Quarter: 2004Q4

REPORT INFORMATION
  Report Type: 
  Country: None (occurrence: None)
  Receive Date: 20041029
  Receipt Date: 20040923
  Transmission Date: 20050328
  Serious: No
  Sender: FDA-Public Use
  Company Number: 2004-120583-NL

PATIENT
  Age: 48 Year
  Sex: Female

DRUGS (7)
  1. NUVARING [Suspect]
     Indication: CONTRACEPTION
     Dosage: DF DAILY VAGINAL
     Route: 067
     Dates: start: 20040711
  2. CLARITIN [Concomitant]
  3. WELLBUTRIN [Concomitant]
  4. MULTI-VITAMINS [Concomitant]
  5. IRON [Concomitant]
  6. VIT B-12 [Concomitant]
  7. CALCIUIM [Concomitant]

REACTIONS (3)
  - MENORRHAGIA [None]
  - METRORRHAGIA [None]
  - VAGINAL CONTRACEPTIVE DEVICE EXPELLED [None]
